FAERS Safety Report 26040153 (Version 4)
Quarter: 2025Q4

REPORT INFORMATION
  Report Type: Report from Study
  Country: JP (occurrence: JP)
  Receive Date: 20251113
  Receipt Date: 20251229
  Transmission Date: 20260118
  Serious: Yes (Other)
  Sender: ALEXION PHARMACEUTICALS
  Company Number: JP-ASTRAZENECA-202509JPN021390JP

PATIENT
  Age: 3 Year
  Sex: Female

DRUGS (5)
  1. KOSELUGO [Suspect]
     Active Substance: SELUMETINIB
     Indication: Neurofibromatosis
     Dosage: 15 MILLIGRAM, BID
     Route: 061
     Dates: start: 20250912, end: 202512
  2. KOSELUGO [Suspect]
     Active Substance: SELUMETINIB
     Dosage: 10 MILLIGRAM, BID
     Route: 061
     Dates: start: 202512, end: 202512
  3. KOSELUGO [Suspect]
     Active Substance: SELUMETINIB
     Dosage: 15 MILLIGRAM, BID
     Route: 061
     Dates: start: 202512
  4. PETROLATUM [Concomitant]
     Active Substance: PETROLATUM
     Indication: Skin wound
     Dosage: UNK
     Route: 048
  5. PETROLATUM [Concomitant]
     Active Substance: PETROLATUM
     Indication: Cutaneous symptom

REACTIONS (13)
  - Enterocolitis [Recovering/Resolving]
  - Dermatitis [Recovered/Resolved]
  - Urticaria [Recovered/Resolved]
  - Eczema [Not Recovered/Not Resolved]
  - Blood creatine phosphokinase increased [Recovered/Resolved]
  - Nasopharyngitis [Unknown]
  - Eye swelling [Not Recovered/Not Resolved]
  - Atopy [Not Recovered/Not Resolved]
  - Product use complaint [Recovered/Resolved]
  - Product dose omission issue [Unknown]
  - Rash [Not Recovered/Not Resolved]
  - Haemorrhage [Not Recovered/Not Resolved]
  - Intentional product misuse [Not Recovered/Not Resolved]

NARRATIVE: CASE EVENT DATE: 20250901
